FAERS Safety Report 5354935-6 (Version None)
Quarter: 2007Q2

REPORT INFORMATION
  Report Type: 
  Country: None (occurrence: None)
  Receive Date: 20070516
  Receipt Date: 20061127
  Transmission Date: 20071010
  Serious: Yes (Other)
  Sender: FDA-Public Use
  Company Number: 2006108369

PATIENT
  Age: 18 Year
  Sex: Female
  Weight: 59.4212 kg

DRUGS (3)
  1. DEPO-PROVERA [Suspect]
     Indication: CONTRACEPTION
     Dosage: SEE IMAGE
     Route: 030
     Dates: start: 20060822, end: 20060822
  2. DEPO-PROVERA [Suspect]
  3. PROTONIX [Concomitant]

REACTIONS (1)
  - ALOPECIA [None]
